FAERS Safety Report 8891343 (Version 1)
Quarter: 2012Q4

REPORT INFORMATION
  Report Type: Spontaneous
  Country: US (occurrence: None)
  Receive Date: 20121102
  Receipt Date: 20121102
  Transmission Date: 20130627
  Serious: Yes (Hospitalization)
  Sender: FDA-Public Use
  Company Number: None

PATIENT
  Age: 32 Year
  Sex: Female
  Weight: 86.18 kg

DRUGS (2)
  1. MIRENA IUD [Suspect]
     Indication: MIGRAINE
     Dates: start: 20110517, end: 20111001
  2. MIRENA IUD [Suspect]
     Indication: CONTRACEPTION
     Dates: start: 20110517, end: 20111001

REACTIONS (1)
  - Device dislocation [None]
